FAERS Safety Report 5765184-1 (Version None)
Quarter: 2008Q2

REPORT INFORMATION
  Report Type: 
  Country: None (occurrence: None)
  Receive Date: 20080604
  Receipt Date: 20080527
  Transmission Date: 20081010
  Serious: Yes (Hospitalization)
  Sender: FDA-Public Use
  Company Number: CLOF-1000184

PATIENT
  Age: 60 Year
  Sex: Female
  Weight: 106 kg

DRUGS (2)
  1. CLOLAR [Suspect]
     Indication: ACUTE MYELOID LEUKAEMIA
     Dosage: INTRAVENOUS
     Route: 042
  2. BUSULFAN (BUSULFAN) UNKNOWN [Suspect]
     Indication: ACUTE MYELOID LEUKAEMIA

REACTIONS (2)
  - CLOSTRIDIUM DIFFICILE COLITIS [None]
  - RASH [None]
